FAERS Safety Report 4499197-7 (Version None)
Quarter: 2004Q4

REPORT INFORMATION
  Report Type: 
  Country: None (occurrence: None)
  Receive Date: 20041111
  Receipt Date: 20040909
  Transmission Date: 20050328
  Serious: Yes (Hospitalization)
  Sender: FDA-Public Use
  Company Number: CA-GLAXOSMITHKLINE-A0525374A

PATIENT
  Age: 52 Year
  Sex: Male

DRUGS (5)
  1. VENTOLIN [Suspect]
     Indication: ASTHMA
     Dosage: 21PUFF PER DAY
     Route: 055
  2. APO-SALVENT [Suspect]
  3. METFORMIN [Concomitant]
     Route: 048
  4. HYDROCHLOROTHIAZIDE [Concomitant]
     Route: 048
  5. AVAPRO [Concomitant]
     Route: 048

REACTIONS (4)
  - CIRCULATORY COLLAPSE [None]
  - PRESCRIBED OVERDOSE [None]
  - SYNCOPE [None]
  - TREATMENT NONCOMPLIANCE [None]
